FAERS Safety Report 5936237-X (Version None)
Quarter: 2008Q4

REPORT INFORMATION
  Report Type: 
  Country: None (occurrence: None)
  Receive Date: 20081030
  Receipt Date: 20080201
  Transmission Date: 20090506
  Serious: No
  Sender: FDA-Public Use
  Company Number: A0706890A

PATIENT
  Sex: Female

DRUGS (4)
  1. SEREVENT [Suspect]
     Indication: ASTHMA
     Dosage: 1PUFF TWICE PER DAY
     Route: 055
     Dates: start: 20080109
  2. FLUTICASONE PROPIONATE NASAL SPRAY [Concomitant]
  3. NASONEX [Concomitant]
  4. ALBUTEROL [Concomitant]

REACTIONS (1)
  - COUGH [None]
